FAERS Safety Report 19739750 (Version 5)
Quarter: 2022Q1

REPORT INFORMATION
  Report Type: Report from Study
  Country: US (occurrence: US)
  Receive Date: 20210823
  Receipt Date: 20220111
  Transmission Date: 20220424
  Serious: No
  Sender: FDA-Public Use
  Company Number: NVSC2021US142152

PATIENT
  Sex: Male
  Weight: 104.31 kg

DRUGS (4)
  1. TREPROSTINIL [Suspect]
     Active Substance: TREPROSTINIL
     Indication: Pulmonary arterial hypertension
     Dosage: 41 NG/KG/MIN, CONT
     Route: 058
     Dates: start: 20210603
  2. TREPROSTINIL [Suspect]
     Active Substance: TREPROSTINIL
     Dosage: UNK
     Route: 065
  3. LETAIRIS [Concomitant]
     Active Substance: AMBRISENTAN
     Indication: Product used for unknown indication
     Dosage: UNK
     Route: 065
  4. WARFARIN [Concomitant]
     Active Substance: WARFARIN
     Indication: Product used for unknown indication
     Dosage: UNK
     Route: 065

REACTIONS (7)
  - Infusion site erythema [Unknown]
  - Skin irritation [Unknown]
  - Infusion site vesicles [Unknown]
  - Dyspnoea [Unknown]
  - Hypervolaemia [Unknown]
  - Chest discomfort [Unknown]
  - Infusion site swelling [Unknown]
